FAERS Safety Report 8175412-3 (Version None)
Quarter: 2012Q1

REPORT INFORMATION
  Report Type: 
  Country: None (occurrence: None)
  Receive Date: 20120229
  Receipt Date: 20120224
  Transmission Date: 20120608
  Serious: Yes (Hospitalization)
  Sender: FDA-Public Use
  Company Number: DE-ABBOTT-12P-062-0909267-00

PATIENT
  Age: 54 Year
  Sex: Male

DRUGS (4)
  1. ERGENYL CHRONO [Suspect]
     Dosage: DAILY
     Route: 048
     Dates: start: 20110929, end: 20110929
  2. ERGENYL CHRONO [Suspect]
     Indication: BIPOLAR I DISORDER
     Dosage: DAILY
     Route: 048
     Dates: start: 20110922, end: 20110924
  3. ERGENYL CHRONO [Suspect]
     Indication: MENTAL DISORDER
     Dosage: DAILY
     Route: 048
     Dates: start: 20110925, end: 20110926
  4. ERGENYL CHRONO [Suspect]
     Dosage: DAILY
     Route: 048
     Dates: start: 20110927, end: 20110928

REACTIONS (10)
  - DYSARTHRIA [None]
  - SEDATION [None]
  - DISTURBANCE IN ATTENTION [None]
  - DISORIENTATION [None]
  - DIZZINESS [None]
  - ENCEPHALOPATHY [None]
  - PARAESTHESIA [None]
  - GAIT DISTURBANCE [None]
  - SOMNOLENCE [None]
  - MEMORY IMPAIRMENT [None]
